FAERS Safety Report 16012226 (Version 2)
Quarter: 2019Q1

REPORT INFORMATION
  Report Type: Spontaneous
  Country: US (occurrence: US)
  Receive Date: 20190227
  Receipt Date: 20190306
  Transmission Date: 20190418
  Serious: Yes (Other)
  Sender: FDA-Public Use
  Company Number: US-PFIZER INC-2019085036

PATIENT
  Age: 23 Year
  Sex: Male
  Weight: 65 kg

DRUGS (6)
  1. DIAZEPAM. [Concomitant]
     Active Substance: DIAZEPAM
     Indication: ANXIETY
     Dosage: 5 MG, UNK
     Route: 042
  2. FENTANYL CITRATE. [Suspect]
     Active Substance: FENTANYL CITRATE
     Indication: ANXIETY
     Dosage: 100 PG, UNK (0.1 MG)
     Route: 042
  3. LIDOCAINE. [Concomitant]
     Active Substance: LIDOCAINE
     Indication: NERVE BLOCK
     Dosage: UNK
  4. THIOPENTAL [Concomitant]
     Active Substance: THIOPENTAL
     Indication: GENERAL ANAESTHESIA
     Dosage: 250 MG, UNK
     Route: 042
  5. NITROUS OXIDE. [Concomitant]
     Active Substance: NITROUS OXIDE
     Indication: GENERAL ANAESTHESIA
     Dosage: UNK
  6. DIAZEPAM. [Concomitant]
     Active Substance: DIAZEPAM
     Dosage: 5 MG, UNK (ADDITIONAL DOSE)
     Route: 042

REACTIONS (4)
  - Aggression [Unknown]
  - Agitation [Unknown]
  - Delirium [Recovered/Resolved]
  - Confusional state [Unknown]
